FAERS Safety Report 9435374 (Version 2)
Quarter: 2013Q3

REPORT INFORMATION
  Report Type: Spontaneous
  Country: US (occurrence: US)
  Receive Date: 20130801
  Receipt Date: 20130905
  Transmission Date: 20140515
  Serious: Yes (Other)
  Sender: FDA-Public Use
  Company Number: US-GLAXOSMITHKLINE-A1035623A

PATIENT
  Age: 69 Year
  Sex: Male
  Weight: 79.5 kg

DRUGS (1)
  1. ADVAIR [Suspect]
     Indication: PRODUCT USED FOR UNKNOWN INDICATION
     Dates: start: 2011

REACTIONS (2)
  - Lung lobectomy [Recovering/Resolving]
  - Pulmonary mass [Recovering/Resolving]
